FAERS Safety Report 8740346 (Version 2)
Quarter: 2013Q4

REPORT INFORMATION
  Report Type: Spontaneous
  Country: US (occurrence: US)
  Receive Date: 20120823
  Receipt Date: 20131101
  Transmission Date: 20140711
  Serious: No
  Sender: FDA-Public Use
  Company Number: US-009507513-1208USA003885

PATIENT
  Age: 61 Year
  Sex: Male

DRUGS (9)
  1. JANUVIA [Suspect]
     Indication: TYPE 2 DIABETES MELLITUS
     Dosage: 100 MG, QD
     Route: 048
     Dates: start: 20120803
  2. NASONEX [Concomitant]
  3. METFORMIN [Concomitant]
  4. GLYBURIDE [Concomitant]
  5. LIPITOR [Concomitant]
  6. LISINOPRIL [Concomitant]
  7. AVODART [Concomitant]
  8. FLOMAX (MORNIFLUMATE) [Concomitant]
  9. ACETAMINOPHEN [Concomitant]

REACTIONS (1)
  - Rash [Not Recovered/Not Resolved]
